FAERS Safety Report 11884857 (Version 1)
Quarter: 2016Q1

REPORT INFORMATION
  Report Type: Spontaneous
  Country: US (occurrence: US)
  Receive Date: 20160104
  Receipt Date: 20160104
  Transmission Date: 20160526
  Serious: Yes (Other)
  Sender: FDA-Public Use
  Company Number: US-BAYER-2015-498014

PATIENT
  Age: 58 Year
  Sex: Female
  Weight: 92.97 kg

DRUGS (8)
  1. MIRALAX [Suspect]
     Active Substance: POLYETHYLENE GLYCOL 3350
     Indication: BOWEL PREPARATION
     Dosage: 230 G, UNK
     Dates: start: 20151227, end: 20151227
  2. STRATTERA [Concomitant]
     Active Substance: ATOMOXETINE HYDROCHLORIDE
  3. GABAPENTIN. [Concomitant]
     Active Substance: GABAPENTIN
  4. LEVEMIR [Concomitant]
     Active Substance: INSULIN DETEMIR
  5. VALIUM [Concomitant]
     Active Substance: DIAZEPAM
  6. LYRICA [Concomitant]
     Active Substance: PREGABALIN
  7. PRILOSEC [Concomitant]
     Active Substance: OMEPRAZOLE MAGNESIUM
  8. INSULIN [Concomitant]
     Active Substance: INSULIN NOS

REACTIONS (2)
  - Product use issue [None]
  - Diarrhoea [Recovering/Resolving]

NARRATIVE: CASE EVENT DATE: 20151227
